FAERS Safety Report 5614276-6 (Version None)
Quarter: 2008Q1

REPORT INFORMATION
  Report Type: 
  Country: None (occurrence: None)
  Receive Date: 20080205
  Receipt Date: 20080129
  Transmission Date: 20080703
  Serious: Yes (Other)
  Sender: FDA-Public Use
  Company Number: DE-PFIZER INC-2007087998

PATIENT
  Sex: Female
  Weight: 64 kg

DRUGS (3)
  1. CAMPTO [Suspect]
     Indication: SMALL INTESTINE CARCINOMA
     Route: 042
  2. FOLINIC ACID [Concomitant]
     Indication: SMALL INTESTINE CARCINOMA
     Route: 042
  3. FLUOROURACIL [Concomitant]
     Indication: SMALL INTESTINE CARCINOMA
     Route: 042

REACTIONS (1)
  - DEAFNESS [None]
